FAERS Safety Report 20246437 (Version 1)
Quarter: 2021Q4

REPORT INFORMATION
  Report Type: Spontaneous
  Country: US (occurrence: None)
  Receive Date: 20211228
  Receipt Date: 20211228
  Transmission Date: 20220303
  Serious: No
  Sender: FDA-Public Use
  Company Number: None

PATIENT
  Sex: Female

DRUGS (1)
  1. AMLODIPINE [Suspect]
     Active Substance: AMLODIPINE BESYLATE
     Indication: Hypertension
     Dosage: FREQUENCY : DAILY;?
     Route: 048
     Dates: start: 20211225, end: 20211226

REACTIONS (4)
  - Dizziness [None]
  - Nausea [None]
  - Loss of consciousness [None]
  - Product substitution issue [None]

NARRATIVE: CASE EVENT DATE: 20211225
